FAERS Safety Report 7919407-0 (Version None)
Quarter: 2011Q4

REPORT INFORMATION
  Report Type: 
  Country: None (occurrence: None)
  Receive Date: 20111115
  Receipt Date: 20111115
  Transmission Date: 20120403
  Serious: No
  Sender: FDA-Public Use
  Company Number: None

PATIENT
  Age: 63 Year
  Sex: Male
  Weight: 102.3 kg

DRUGS (1)
  1. IODIXANOL [Suspect]
     Indication: COMPUTERISED TOMOGRAM THORAX
     Dosage: 80 ML ONCE IV
     Route: 042
     Dates: start: 20110810, end: 20110810

REACTIONS (3)
  - PRURITUS [None]
  - URTICARIA [None]
  - ANGIOEDEMA [None]
